FAERS Safety Report 6268191-8 (Version None)
Quarter: 2009Q3

REPORT INFORMATION
  Report Type: 
  Country: None (occurrence: None)
  Receive Date: 20090714
  Receipt Date: 20090714
  Transmission Date: 20100115
  Serious: Yes (Other)
  Sender: FDA-Public Use
  Company Number: None

PATIENT
  Age: 8 Year
  Sex: Male
  Weight: 30 kg

DRUGS (1)
  1. SINGULAIR [Suspect]
     Indication: ASTHMA
     Dosage: 1 TABLET -5MG- DAILY PO
     Route: 048
     Dates: start: 20090301, end: 20090711

REACTIONS (12)
  - AGGRESSION [None]
  - ANGER [None]
  - EMOTIONAL DISORDER [None]
  - ENURESIS [None]
  - FRUSTRATION [None]
  - NIGHTMARE [None]
  - PAIN IN EXTREMITY [None]
  - PERSONALITY CHANGE [None]
  - PSYCHOMOTOR HYPERACTIVITY [None]
  - SCREAMING [None]
  - TREMOR [None]
  - VERBAL ABUSE [None]
